FAERS Safety Report 7262043-2 (Version None)
Quarter: 2011Q1

REPORT INFORMATION
  Report Type: 
  Country: None (occurrence: None)
  Receive Date: 20110130
  Receipt Date: 20101026
  Transmission Date: 20110831
  Serious: Yes (Other)
  Sender: FDA-Public Use
  Company Number: US-ABBOTT-10P-163-0681436-00

PATIENT
  Sex: Female

DRUGS (4)
  1. ARAVA [Concomitant]
     Indication: PRODUCT USED FOR UNKNOWN INDICATION
  2. HUMIRA [Suspect]
     Dates: start: 20100301, end: 20100901
  3. HUMIRA [Suspect]
     Dates: start: 20090101, end: 20100301
  4. HUMIRA [Suspect]
     Indication: RHEUMATOID ARTHRITIS
     Route: 058
     Dates: start: 20060101, end: 20070101

REACTIONS (3)
  - TIBIA FRACTURE [None]
  - ROAD TRAFFIC ACCIDENT [None]
  - DRUG INEFFECTIVE [None]
